FAERS Safety Report 24261810 (Version 1)
Quarter: 2024Q3

REPORT INFORMATION
  Report Type: Report from Study
  Country: US (occurrence: US)
  Receive Date: 20240829
  Receipt Date: 20240829
  Transmission Date: 20241016
  Serious: No
  Sender: ROCHE
  Company Number: US-ROCHE-10000067240

PATIENT
  Age: 65 Year
  Sex: Female
  Weight: 86.18 kg

DRUGS (7)
  1. OCREVUS [Suspect]
     Active Substance: OCRELIZUMAB
     Indication: Relapsing-remitting multiple sclerosis
     Dosage: FIRST AND SECOND DOSE WERE 2 WEEKS APART AND THEN EVERY 6 MONTHS
     Route: 042
     Dates: start: 202105
  2. OCREVUS [Suspect]
     Active Substance: OCRELIZUMAB
     Indication: Multiple sclerosis
  3. OXCARBAZEPINE [Concomitant]
     Active Substance: OXCARBAZEPINE
     Dosage: 300 MG AT 10:00 AM AND 600 MG AT BEDTIME
  4. GABAPENTIN [Concomitant]
     Active Substance: GABAPENTIN
  5. SYNTHROID [Concomitant]
     Active Substance: LEVOTHYROXINE SODIUM
  6. CRESTOR [Concomitant]
     Active Substance: ROSUVASTATIN CALCIUM
     Indication: Blood cholesterol
  7. BACLOFEN [Concomitant]
     Active Substance: BACLOFEN

REACTIONS (4)
  - Blood test abnormal [Unknown]
  - Electric shock [Not Recovered/Not Resolved]
  - Gait disturbance [Unknown]
  - COVID-19 [Unknown]

NARRATIVE: CASE EVENT DATE: 20240603
